FAERS Safety Report 7878731-0 (Version None)
Quarter: 2011Q4

REPORT INFORMATION
  Report Type: 
  Country: None (occurrence: None)
  Receive Date: 20111021
  Receipt Date: 20110727
  Transmission Date: 20120403
  Serious: No
  Sender: FDA-Public Use
  Company Number: US-006001

PATIENT
  Sex: Female
  Weight: 70.3075 kg

DRUGS (2)
  1. SYNTHROID [Concomitant]
  2. DEGARELIX (240 MG, 80 MG) [Suspect]
     Indication: ACCIDENTAL EXPOSURE
     Dosage: SUBCUTANEOUS
     Route: 058
     Dates: start: 20101001, end: 20101101

REACTIONS (3)
  - HOT FLUSH [None]
  - HYPERHIDROSIS [None]
  - FLUSHING [None]
